FAERS Safety Report 23564822 (Version 3)
Quarter: 2024Q2

REPORT INFORMATION
  Report Type: Spontaneous
  Country: US (occurrence: US)
  Receive Date: 20240226
  Receipt Date: 20240410
  Transmission Date: 20240716
  Serious: Yes (Other)
  Sender: FDA-Public Use
  Company Number: US-PFIZER INC-202400047147

PATIENT
  Age: 14 Year
  Sex: Male

DRUGS (1)
  1. GENOTROPIN [Suspect]
     Active Substance: SOMATROPIN
     Indication: Growth hormone deficiency
     Dosage: 1.9MG 6 DAYS A WEEK
     Route: 058

REACTIONS (5)
  - Lower limb fracture [Unknown]
  - Concussion [Recovering/Resolving]
  - Vertigo [Recovering/Resolving]
  - Insulin-like growth factor increased [Recovered/Resolved]
  - Acne [Unknown]
